FAERS Safety Report 5519506-7 (Version None)
Quarter: 2007Q4

REPORT INFORMATION
  Report Type: 
  Country: None (occurrence: None)
  Receive Date: 20071116
  Receipt Date: 20071106
  Transmission Date: 20080405
  Serious: Yes (Death, Hospitalization)
  Sender: FDA-Public Use
  Company Number: TR-ELI_LILLY_AND_COMPANY-TR200711001245

PATIENT
  Sex: Female

DRUGS (2)
  1. HUMULIN R [Suspect]
     Dosage: UNK UNK, UNKNOWN
     Route: 058
     Dates: start: 20070914, end: 20070920
  2. HUMULIN N [Suspect]
     Dosage: UNK UNK, UNKNOWN
     Route: 058
     Dates: start: 20070914, end: 20070920

REACTIONS (2)
  - CARDIAC FAILURE [None]
  - MYOCARDIAL INFARCTION [None]
